FAERS Safety Report 8298280-8 (Version None)
Quarter: 2012Q2

REPORT INFORMATION
  Report Type: 
  Country: None (occurrence: None)
  Receive Date: 20120419
  Receipt Date: 20120201
  Transmission Date: 20120825
  Serious: No
  Sender: FDA-Public Use
  Company Number: US-BRISTOL-MYERS SQUIBB COMPANY-16358335

PATIENT
  Age: 57 Year
  Sex: Male

DRUGS (1)
  1. YERVOY [Suspect]
     Indication: MALIGNANT MELANOMA
     Dosage: LOT 50MG VIALS WAS 917351 EX JAN14,FOR 200 MG VIAL, LOT#917376 EXP:JAN14. TAKEN ON 29DEC11,19JAN12
     Route: 042
     Dates: start: 20111208

REACTIONS (1)
  - EXTRAVASATION [None]
